FAERS Safety Report 4864292-7 (Version None)
Quarter: 2005Q4

REPORT INFORMATION
  Report Type: 
  Country: None (occurrence: None)
  Receive Date: 20051221
  Receipt Date: 20051221
  Transmission Date: 20060501
  Serious: Yes (Life-Threatening, Hospitalization)
  Sender: FDA-Public Use
  Company Number: None

PATIENT
  Age: 24 Year
  Sex: Female
  Weight: 74.8435 kg

DRUGS (1)
  1. ORTHO EVRA [Suspect]
     Indication: CONTRACEPTION
     Dosage: 1 PATCH /WK
     Dates: start: 20030801

REACTIONS (9)
  - ASTHENIA [None]
  - IMPAIRED DRIVING ABILITY [None]
  - IMPAIRED WORK ABILITY [None]
  - OEDEMA PERIPHERAL [None]
  - PHARYNGEAL OEDEMA [None]
  - RESPIRATORY DISORDER [None]
  - SOMNOLENCE [None]
  - SWELLING FACE [None]
  - SWOLLEN TONGUE [None]
